FAERS Safety Report 4592423-5 (Version None)
Quarter: 2005Q1

REPORT INFORMATION
  Report Type: 
  Country: None (occurrence: None)
  Receive Date: 20050228
  Receipt Date: 20050121
  Transmission Date: 20050727
  Serious: No
  Sender: FDA-Public Use
  Company Number: US-BRISTOL-MYERS SQUIBB COMPANY-12833893

PATIENT
  Age: 60 Year
  Sex: Female

DRUGS (3)
  1. ABILIFY [Suspect]
     Indication: BIPOLAR DISORDER
     Dosage: 5 MG/DAY STARTED 7 WEEKS AGO; DOSE INCREASED TO 12.5 MG/DAY ON 24-JAN-2005.
     Route: 048
  2. BENICAR [Concomitant]
  3. ESTROL [Concomitant]

REACTIONS (5)
  - DEPRESSION [None]
  - HALLUCINATION [None]
  - NERVOUSNESS [None]
  - NIGHTMARE [None]
  - TINNITUS [None]
